FAERS Safety Report 6828543-1 (Version None)
Quarter: 2010Q3

REPORT INFORMATION
  Report Type: 
  Country: None (occurrence: None)
  Receive Date: 20100709
  Receipt Date: 20070212
  Transmission Date: 20110219
  Serious: No
  Sender: FDA-Public Use
  Company Number: US-PFIZER INC-2007013341

PATIENT
  Sex: Female
  Weight: 54.43 kg

DRUGS (8)
  1. CHANTIX [Suspect]
     Indication: SMOKING CESSATION THERAPY
     Dates: start: 20060701, end: 20061101
  2. SPIRIVA [Concomitant]
  3. ASMADEX [Concomitant]
  4. FORADIL [Concomitant]
  5. ZYRTEC [Concomitant]
  6. MONTELUKAST SODIUM [Concomitant]
  7. PROTONIX [Concomitant]
     Indication: GASTRIC DISORDER
  8. VITAMINS [Concomitant]

REACTIONS (2)
  - NAUSEA [None]
  - VOMITING [None]
